FAERS Safety Report 16879795 (Version 1)
Quarter: 2019Q4

REPORT INFORMATION
  Report Type: Report from Study
  Country: US (occurrence: US)
  Receive Date: 20191003
  Receipt Date: 20191003
  Transmission Date: 20200122
  Serious: Yes (Hospitalization)
  Sender: FDA-Public Use
  Company Number: US-ROCHE-2390951

PATIENT
  Age: 62 Year
  Sex: Female
  Weight: 68.1 kg

DRUGS (3)
  1. TECENTRIQ [Suspect]
     Active Substance: ATEZOLIZUMAB
     Indication: NEOPLASM MALIGNANT
  2. TECENTRIQ [Suspect]
     Active Substance: ATEZOLIZUMAB
     Indication: BREAST CANCER METASTATIC
     Dosage: ONGOING:UNKNOWN
     Route: 042
     Dates: start: 20190723
  3. TECENTRIQ [Suspect]
     Active Substance: ATEZOLIZUMAB
     Indication: METASTASES TO GASTROINTESTINAL TRACT

REACTIONS (5)
  - Thrombocytopenia [Recovered/Resolved]
  - Drug ineffective [Unknown]
  - Febrile neutropenia [Recovered/Resolved]
  - Hepatic enzyme increased [Recovered/Resolved]
  - Hyperthyroidism [Not Recovered/Not Resolved]

NARRATIVE: CASE EVENT DATE: 20190803
